FAERS Safety Report 6919429-2 (Version None)
Quarter: 2010Q3

REPORT INFORMATION
  Report Type: 
  Country: None (occurrence: None)
  Receive Date: 20100811
  Receipt Date: 20100802
  Transmission Date: 20110219
  Serious: Yes (Other)
  Sender: FDA-Public Use
  Company Number: B0614980A

PATIENT
  Sex: Female
  Weight: 59 kg

DRUGS (8)
  1. CERVARIX [Suspect]
     Indication: PROPHYLAXIS
     Dosage: 1INJ SINGLE DOSE
     Route: 030
     Dates: start: 20091101, end: 20091101
  2. AMOXICILLIN [Suspect]
     Indication: URINARY TRACT INFECTION
     Dosage: 500MG THREE TIMES PER DAY
     Route: 048
     Dates: start: 20091222
  3. DIAZEPAM [Suspect]
     Indication: SEDATION
     Dosage: 2MG THREE TIMES PER DAY
     Route: 048
     Dates: start: 20091013, end: 20091016
  4. CLOTRIMAZOL [Suspect]
     Route: 065
     Dates: start: 20091215
  5. CLENIL [Concomitant]
     Indication: ASTHMA
     Dosage: 250MCG TWICE PER DAY
     Route: 055
     Dates: start: 20070101
  6. ALBUTEROL SULFATE AUTOHALER [Concomitant]
     Indication: ASTHMA
     Route: 055
     Dates: start: 20060101
  7. NORDETTE-28 [Concomitant]
     Indication: CONTRACEPTION
     Route: 048
     Dates: start: 20080101
  8. FOLIC ACID [Concomitant]
     Indication: PREGNANCY
     Dosage: 400MCG PER DAY
     Route: 048
     Dates: start: 20091211

REACTIONS (2)
  - ABORTION SPONTANEOUS [None]
  - DRUG EXPOSURE DURING PREGNANCY [None]
